FAERS Safety Report 8245115-5 (Version None)
Quarter: 2012Q1

REPORT INFORMATION
  Report Type: 
  Country: None (occurrence: None)
  Receive Date: 20120329
  Receipt Date: 20120319
  Transmission Date: 20120608
  Serious: Yes (Hospitalization)
  Sender: FDA-Public Use
  Company Number: FR-GLAXOSMITHKLINE-B0790735A

PATIENT
  Age: 51 Year
  Sex: Female

DRUGS (2)
  1. ASPIRIN [Concomitant]
  2. ARIXTRA [Suspect]
     Indication: DEEP VEIN THROMBOSIS
     Dosage: 7.5MG PER DAY
     Route: 058
     Dates: start: 20120305, end: 20120310

REACTIONS (1)
  - MUSCLE HAEMORRHAGE [None]
